FAERS Safety Report 18841364 (Version 2)
Quarter: 2021Q1

REPORT INFORMATION
  Report Type: Spontaneous
  Country: JP (occurrence: JP)
  Receive Date: 20210203
  Receipt Date: 20210311
  Transmission Date: 20210419
  Serious: Yes (Hospitalization, Other)
  Sender: FDA-Public Use
  Company Number: JP-009507513-2101JPN002173J

PATIENT
  Age: 77 Year
  Sex: Female
  Weight: 45 kg

DRUGS (3)
  1. CARBOPLATIN. [Concomitant]
     Active Substance: CARBOPLATIN
     Indication: LUNG SQUAMOUS CELL CARCINOMA STAGE IV
     Dosage: UNK UNK, EVERY 4 WEEKS
     Route: 041
     Dates: start: 20201125, end: 20201223
  2. KEYTRUDA [Suspect]
     Active Substance: PEMBROLIZUMAB
     Indication: LUNG SQUAMOUS CELL CARCINOMA STAGE IV
     Dosage: 200 MILLIGRAM, EVERY 4 WEEKS
     Route: 041
     Dates: start: 20201125, end: 20201223
  3. ABRAXANE [Concomitant]
     Active Substance: PACLITAXEL
     Indication: LUNG SQUAMOUS CELL CARCINOMA STAGE IV
     Dosage: UNK
     Route: 041
     Dates: start: 20201125, end: 20201223

REACTIONS (4)
  - Acute kidney injury [Recovering/Resolving]
  - Off label use [Unknown]
  - Oesophageal candidiasis [Recovering/Resolving]
  - Pyrexia [Recovering/Resolving]

NARRATIVE: CASE EVENT DATE: 20201125
